FAERS Safety Report 9005373 (Version 3)
Quarter: 2013Q2

REPORT INFORMATION
  Report Type: Report from Study
  Country: US (occurrence: US)
  Receive Date: 20130108
  Receipt Date: 20130405
  Transmission Date: 20140414
  Serious: Yes (Other)
  Sender: FDA-Public Use
  Company Number: US-VERTEX PHARMACEUTICALS INC.-2013-000266

PATIENT
  Age: 53 Year
  Sex: Male
  Weight: 96 kg

DRUGS (9)
  1. VX-950 (TELAPREVIR) [Suspect]
     Indication: HEPATITIS C
     Dosage: 750 MG, TID
     Route: 048
     Dates: start: 20130103
  2. PEGASYS [Suspect]
     Indication: HEPATITIS C
     Dosage: 180 ?G, UNK
  3. RIBAVIRIN [Suspect]
     Indication: HEPATITIS C
     Dosage: UNK
  4. LOSARTAN POTASSIUM [Concomitant]
     Dosage: 50 MG, UNK
  5. GLYBURIDE (MICRONIZED) [Concomitant]
     Dosage: 5 MG, UNK
  6. LEVOTHYROXINE [Concomitant]
     Dosage: 175 ?G, UNK
  7. FISH OIL [Concomitant]
  8. MILK THISTLE [Concomitant]
  9. HUMULIN R [Concomitant]
     Dosage: U-100

REACTIONS (6)
  - Idiopathic thrombocytopenic purpura [Unknown]
  - Arthralgia [Recovered/Resolved]
  - Pain in extremity [Recovered/Resolved]
  - Proctalgia [Unknown]
  - Anaemia [Unknown]
  - Pruritus [Unknown]
